FAERS Safety Report 21927030 (Version 1)
Quarter: 2023Q1

REPORT INFORMATION
  Report Type: Spontaneous
  Country: US (occurrence: None)
  Receive Date: 20230128
  Receipt Date: 20230128
  Transmission Date: 20230418
  Serious: Yes (Other)
  Sender: FDA-Public Use
  Company Number: None

PATIENT
  Age: 66 Year
  Sex: Male
  Weight: 102.6 kg

DRUGS (2)
  1. RANEXA [Suspect]
     Active Substance: RANOLAZINE
     Indication: Angina pectoris
     Dosage: FREQUENCY : TWICE A DAY;?
     Route: 048
     Dates: start: 20221028
  2. Buprenorphine/naloxone (Suboxone) [Concomitant]
     Dates: start: 20220329

REACTIONS (1)
  - Drug screen negative [None]

NARRATIVE: CASE EVENT DATE: 20221115
